FAERS Safety Report 4412143-7 (Version None)
Quarter: 2004Q2

REPORT INFORMATION
  Report Type: 
  Country: None (occurrence: None)
  Receive Date: 20040630
  Receipt Date: 20040324
  Transmission Date: 20050107
  Serious: No
  Sender: FDA-Public Use
  Company Number: 04P-163-0254468-00

PATIENT
  Age: 57 Year
  Sex: Female
  Weight: 50.8029 kg

DRUGS (8)
  1. HUMIRA [Suspect]
     Indication: ANKYLOSING SPONDYLITIS
     Dosage: 40 MG, 1 IN 2 WK, SUBCUTANEOUS
     Route: 058
     Dates: start: 20040305
  2. AMILORIDE [Concomitant]
  3. FOSINOPRIL SODIUM [Concomitant]
  4. ESTROTASE [Concomitant]
  5. PROGESTERONE [Concomitant]
  6. AMITRIPTYLINE HCL [Concomitant]
  7. PREDNISONE [Concomitant]
  8. ACETAMINOPHEN W/ CODEINE [Concomitant]

REACTIONS (1)
  - PRURITUS GENERALISED [None]
